FAERS Safety Report 8881938 (Version 2)
Quarter: 2013Q1

REPORT INFORMATION
  Report Type: Spontaneous
  Country: US (occurrence: US)
  Receive Date: 20121101
  Receipt Date: 20130124
  Transmission Date: 20140127
  Serious: No
  Sender: FDA-Public Use
  Company Number: US-ASTRAZENECA-2012SE80144

PATIENT
  Age: 60 Year
  Sex: Male
  Weight: 86.2 kg

DRUGS (5)
  1. ATACAND HCT [Suspect]
     Dosage: 16/12.5MG, QAM
     Route: 048
  2. NEXIUM [Suspect]
     Route: 048
  3. CRESTOR [Suspect]
     Route: 048
  4. LOTRISONE [Concomitant]
     Indication: RASH
  5. MULTI-DAY TAB [Concomitant]

REACTIONS (10)
  - Chest discomfort [Unknown]
  - Chest discomfort [Unknown]
  - Hypertension [Unknown]
  - Dysphonia [Unknown]
  - Nasal congestion [Unknown]
  - Oropharyngeal pain [Unknown]
  - Sinus headache [Unknown]
  - Upper respiratory tract infection [Unknown]
  - Cough [Unknown]
  - Drug dose omission [Unknown]
